FAERS Safety Report 25981086 (Version 1)
Quarter: 2025Q4

REPORT INFORMATION
  Report Type: Spontaneous
  Country: US (occurrence: None)
  Receive Date: 20251030
  Receipt Date: 20251030
  Transmission Date: 20260118
  Serious: Yes (Death)
  Sender: FDA-CTU
  Company Number: None

PATIENT
  Age: 85 Year
  Sex: Male

DRUGS (13)
  1. CREON [Suspect]
     Active Substance: PANCRELIPASE AMYLASE\PANCRELIPASE LIPASE\PANCRELIPASE PROTEASE
     Indication: Pancreatic failure
     Dosage: OTHER FREQUENCY : FIVE TIMES DAILY;?
     Route: 048
     Dates: start: 20250823
  2. ACETAMINOPHEN 500MG TABLETS [Concomitant]
  3. ASPIRIN [Concomitant]
     Active Substance: ASPIRIN
  4. EZETIMIBE [Concomitant]
     Active Substance: EZETIMIBE
  5. FISH OIL 1000MG CAPSULES [Concomitant]
  6. MULTIVITAMIN ADULTS TABLETS [Concomitant]
  7. NITROGLYCERIN 0.4MG SUB TAB 25S [Concomitant]
  8. NOVOLOG U-100 INSULIN VL10ML(ORANG) [Concomitant]
  9. PROPRANOLOL 20MG TABLETS [Concomitant]
  10. ROSUVASTATIN [Concomitant]
     Active Substance: ROSUVASTATIN
  11. TAMSULOSIN [Concomitant]
     Active Substance: TAMSULOSIN
  12. LANTUS SOLOSTAR PEN INJ 3ML [Concomitant]
  13. PROTONIX 40MG TABLETS [Concomitant]

REACTIONS (1)
  - Pancreatic carcinoma [None]

NARRATIVE: CASE EVENT DATE: 20251024
